FAERS Safety Report 13416421 (Version 3)
Quarter: 2017Q2

REPORT INFORMATION
  Report Type: Spontaneous
  Country: None (occurrence: FR)
  Receive Date: 20170406
  Receipt Date: 20170601
  Transmission Date: 20170830
  Serious: Yes (Death, Life-Threatening)
  Sender: FDA-Public Use
  Company Number: FR-MERZ NORTH AMERICA, INC.-17MRZ-00117

PATIENT
  Sex: Male

DRUGS (1)
  1. ASCLERA [Suspect]
     Active Substance: POLIDOCANOL
     Indication: VARICOSE VEIN
     Dosage: TWO INJECTIONS WITH EACH 2 X 3 ML FOAM AND ONE INJECTION WITH 3 ML LIQUID??15ML
     Route: 042
     Dates: end: 20170126

REACTIONS (3)
  - Hemiplegia [Fatal]
  - Coma [Fatal]
  - Arterial thrombosis [Fatal]

NARRATIVE: CASE EVENT DATE: 2017
